FAERS Safety Report 13461750 (Version 1)
Quarter: 2017Q2

REPORT INFORMATION
  Report Type: Spontaneous
  Country: US (occurrence: US)
  Receive Date: 20170418
  Receipt Date: 20170418
  Transmission Date: 20170830
  Serious: Yes (Hospitalization)
  Sender: FDA-Public Use
  Company Number: None

PATIENT
  Age: 67 Year
  Sex: Female

DRUGS (20)
  1. NYSTOP POW [Concomitant]
  2. OMEPRAZOLE. [Concomitant]
     Active Substance: OMEPRAZOLE
  3. GILENYA [Suspect]
     Active Substance: FINGOLIMOD HYDROCHLORIDE
     Indication: MULTIPLE SCLEROSIS
     Route: 048
     Dates: start: 201507
  4. TIZANIDINE. [Concomitant]
     Active Substance: TIZANIDINE
  5. FLUTICASONE. [Concomitant]
     Active Substance: FLUTICASONE
  6. LYRICA [Concomitant]
     Active Substance: PREGABALIN
  7. DICLOFENAC [Concomitant]
     Active Substance: DICLOFENAC
  8. POLYETH GLYC POW [Concomitant]
  9. RESTASIS [Concomitant]
     Active Substance: CYCLOSPORINE
  10. LEVOTHYROXIN [Concomitant]
     Active Substance: LEVOTHYROXINE
  11. MONTELUKAST [Concomitant]
     Active Substance: MONTELUKAST SODIUM
  12. ALVESCO [Concomitant]
     Active Substance: CICLESONIDE
  13. HYDROXYZ [Concomitant]
     Active Substance: HYDROXYZINE HYDROCHLORIDE
  14. SYMBICORT [Concomitant]
     Active Substance: BUDESONIDE\FORMOTEROL FUMARATE DIHYDRATE
  15. PROAIR HFS [Concomitant]
  16. GABAPENTIN. [Concomitant]
     Active Substance: GABAPENTIN
  17. BACLOFEN. [Concomitant]
     Active Substance: BACLOFEN
  18. DULOXETINE. [Concomitant]
     Active Substance: DULOXETINE
  19. LOSARTAN POT HYDROCHOLOROT [Concomitant]
  20. CARISPOPRODOL [Concomitant]

REACTIONS (6)
  - Hallucination [None]
  - Head injury [None]
  - Syncope [None]
  - Progressive multiple sclerosis [None]
  - Multiple sclerosis relapse [None]
  - Musculoskeletal disorder [None]

NARRATIVE: CASE EVENT DATE: 201703
